FAERS Safety Report 8195802-2 (Version None)
Quarter: 2012Q1

REPORT INFORMATION
  Report Type: 
  Country: None (occurrence: None)
  Receive Date: 20120308
  Receipt Date: 20120228
  Transmission Date: 20120608
  Serious: Yes (Other)
  Sender: FDA-Public Use
  Company Number: US-ELI_LILLY_AND_COMPANY-US201203000278

PATIENT

DRUGS (5)
  1. HYDROCODONE BITARTRATE [Concomitant]
     Dosage: UNK
  2. DIOVAN [Concomitant]
     Dosage: UNK
  3. FORTEO [Suspect]
     Dosage: 20 UG, QD
     Route: 065
     Dates: start: 20120119
  4. SYNTHROID [Concomitant]
     Dosage: UNK
  5. FORTEO [Suspect]
     Indication: OSTEOPOROSIS
     Dosage: 20 UG, QD
     Route: 065
     Dates: start: 20120119

REACTIONS (3)
  - SPINAL COMPRESSION FRACTURE [None]
  - ARTHRALGIA [None]
  - SPINAL DISORDER [None]
